FAERS Safety Report 23467995 (Version 4)
Quarter: 2024Q1

REPORT INFORMATION
  Report Type: Spontaneous
  Country: US (occurrence: US)
  Receive Date: 20240201
  Receipt Date: 20240313
  Transmission Date: 20240409
  Serious: No
  Sender: FDA-Public Use
  Company Number: US-Blueprint Medicines Corporation-2149

PATIENT
  Age: 72 Year
  Sex: Female

DRUGS (5)
  1. AYVAKIT [Suspect]
     Active Substance: AVAPRITINIB
     Indication: Gastrointestinal stromal tumour
     Route: 048
     Dates: start: 20231103
  2. AYVAKIT [Suspect]
     Active Substance: AVAPRITINIB
     Route: 048
     Dates: start: 20231102
  3. AYVAKIT [Suspect]
     Active Substance: AVAPRITINIB
     Dosage: 300 MG EVERY OTHER DAY AND ALTERNATING WITH 200 MG
     Route: 048
     Dates: start: 20240213
  4. AYVAKIT [Suspect]
     Active Substance: AVAPRITINIB
     Dosage: 300 MG EVERY OTHER DAY AND ALTERNATING WITH 200 MG
     Route: 048
     Dates: start: 20240213
  5. AYVAKIT [Suspect]
     Active Substance: AVAPRITINIB
     Route: 048
     Dates: start: 20231102

REACTIONS (2)
  - Fatigue [Not Recovered/Not Resolved]
  - Rash [Recovering/Resolving]

NARRATIVE: CASE EVENT DATE: 20240111
